FAERS Safety Report 9124374 (Version 1)
Quarter: 2013Q1

REPORT INFORMATION
  Report Type: Spontaneous
  Country: IL (occurrence: IL)
  Receive Date: 20130116
  Receipt Date: 20130116
  Transmission Date: 20140127
  Serious: Yes (Hospitalization)
  Sender: FDA-Public Use
  Company Number: IL-PFIZER INC-2013015328

PATIENT
  Age: 62 Year
  Sex: Male

DRUGS (1)
  1. VFEND [Suspect]
     Indication: ASPERGILLUS INFECTION
     Dosage: 200 MG, 3X/DAY
     Route: 048

REACTIONS (2)
  - Blood disorder [Not Recovered/Not Resolved]
  - Haemolysis [Not Recovered/Not Resolved]
